FAERS Safety Report 7768031-1 (Version None)
Quarter: 2011Q3

REPORT INFORMATION
  Report Type: 
  Country: None (occurrence: None)
  Receive Date: 20110922
  Receipt Date: 20110128
  Transmission Date: 20111222
  Serious: Yes (Hospitalization)
  Sender: FDA-Public Use
  Company Number: US-ASTRAZENECA-2011SE05083

PATIENT
  Age: 42 Year
  Sex: Female

DRUGS (3)
  1. PROZAC [Suspect]
  2. SEROQUEL XR [Suspect]
     Indication: MAJOR DEPRESSION
     Route: 048
  3. SEROQUEL XR [Suspect]
     Dosage: FOUR DOSES
     Route: 048

REACTIONS (1)
  - CONFUSIONAL STATE [None]
